FAERS Safety Report 9787613 (Version 2)
Quarter: 2014Q1

REPORT INFORMATION
  Report Type: Spontaneous
  Country: GB (occurrence: GB)
  Receive Date: 20131230
  Receipt Date: 20140318
  Transmission Date: 20141002
  Serious: Yes (Disabling)
  Sender: FDA-Public Use
  Company Number: GB-MERCK-1312GBR011171

PATIENT
  Age: 70 Year
  Sex: Female
  Weight: 80.73 kg

DRUGS (4)
  1. EZETIMIBE [Suspect]
     Indication: BLOOD CHOLESTEROL INCREASED
     Dosage: 10 MG, UNK
     Route: 048
     Dates: start: 20120109, end: 20131123
  2. ASPIRIN [Concomitant]
     Dosage: 75 MG, UNK
  3. ATENOLOL (+) CHLORTHALIDONE [Concomitant]
  4. RAMIPRIL [Concomitant]
     Dosage: 10 MG, UNK

REACTIONS (5)
  - Muscle fatigue [Recovered/Resolved with Sequelae]
  - Neck pain [Recovered/Resolved with Sequelae]
  - Pain in extremity [Not Recovered/Not Resolved]
  - Myalgia [Unknown]
  - Pain [Unknown]
